FAERS Safety Report 22000777 (Version 1)
Quarter: 2023Q1

REPORT INFORMATION
  Report Type: Report from Study
  Country: AR (occurrence: AR)
  Receive Date: 20230216
  Receipt Date: 20230216
  Transmission Date: 20230418
  Serious: Yes (Death, Other)
  Sender: FDA-Public Use
  Company Number: AR-002147023-NVSC2022AR237262

PATIENT
  Age: 54 Year
  Sex: Female

DRUGS (4)
  1. KISQALI [Suspect]
     Active Substance: RIBOCICLIB
     Indication: Breast cancer metastatic
     Dosage: 600 MG, QD
     Route: 048
     Dates: start: 20211228
  2. KISQALI [Suspect]
     Active Substance: RIBOCICLIB
     Dosage: 200 MG, TID
     Route: 048
     Dates: start: 20211228
  3. KISQALI [Suspect]
     Active Substance: RIBOCICLIB
     Dosage: UNK
     Route: 065
     Dates: end: 20220919
  4. KISQALI [Suspect]
     Active Substance: RIBOCICLIB
     Dosage: UNK
     Route: 065
     Dates: start: 20221004

REACTIONS (16)
  - Death [Fatal]
  - Breast cancer recurrent [Recovering/Resolving]
  - Malaise [Unknown]
  - Eating disorder [Unknown]
  - Pain [Unknown]
  - Sleep disorder [Unknown]
  - Mobility decreased [Unknown]
  - Myalgia [Recovering/Resolving]
  - Neck pain [Recovering/Resolving]
  - Pain in extremity [Recovering/Resolving]
  - Peripheral swelling [Recovering/Resolving]
  - Tremor [Recovering/Resolving]
  - Dysstasia [Recovering/Resolving]
  - Asthenia [Recovering/Resolving]
  - Anaemia [Unknown]
  - Nausea [Recovering/Resolving]

NARRATIVE: CASE EVENT DATE: 20221004
